FAERS Safety Report 24543680 (Version 4)
Quarter: 2025Q1

REPORT INFORMATION
  Report Type: Spontaneous
  Country: JP (occurrence: JP)
  Receive Date: 20241024
  Receipt Date: 20250123
  Transmission Date: 20250409
  Serious: Yes (Other)
  Sender: GLAXOSMITHKLINE
  Company Number: JP-GSK-JP2024JPN128863

PATIENT

DRUGS (2)
  1. DAPRODUSTAT [Suspect]
     Active Substance: DAPRODUSTAT
  2. DAPRODUSTAT [Suspect]
     Active Substance: DAPRODUSTAT

REACTIONS (1)
  - Pancreatitis [Recovered/Resolved]
